FAERS Safety Report 4665570-7 (Version None)
Quarter: 2005Q2

REPORT INFORMATION
  Report Type: 
  Country: None (occurrence: None)
  Receive Date: 20050519
  Receipt Date: 20050131
  Transmission Date: 20051028
  Serious: No
  Sender: FDA-Public Use
  Company Number: US-BRISTOL-MYERS SQUIBB COMPANY-12845095

PATIENT
  Age: 70 Year
  Sex: Female
  Weight: 82 kg

DRUGS (2)
  1. GLUCOPHAGE [Suspect]
     Indication: DIABETES MELLITUS
     Route: 048
  2. MONOPRIL [Suspect]
     Indication: HYPERTENSION
     Route: 048

REACTIONS (1)
  - DIARRHOEA [None]
